FAERS Safety Report 12762146 (Version 4)
Quarter: 2016Q4

REPORT INFORMATION
  Report Type: Spontaneous
  Country: US (occurrence: US)
  Receive Date: 20160920
  Receipt Date: 20161107
  Transmission Date: 20170207
  Serious: Yes (Hospitalization)
  Sender: FDA-Public Use
  Company Number: US-009507513-1609USA007046

PATIENT
  Age: 76 Year
  Sex: Male
  Weight: 70.7 kg

DRUGS (5)
  1. ASPIRIN. [Concomitant]
     Active Substance: ASPIRIN
     Route: 048
  2. BELSOMRA [Suspect]
     Active Substance: SUVOREXANT
     Indication: INSOMNIA
     Dosage: 10 MG, ONCE PER NIGHT
     Route: 048
     Dates: start: 20160906, end: 201609
  3. BELSOMRA [Suspect]
     Active Substance: SUVOREXANT
     Dosage: 10 MG, ONCE PER NIGHT
     Route: 048
     Dates: start: 201609, end: 20160915
  4. CARISOPRODOL. [Concomitant]
     Active Substance: CARISOPRODOL
  5. SURMONTIL [Concomitant]
     Active Substance: TRIMIPRAMINE MALEATE

REACTIONS (1)
  - Epistaxis [Recovered/Resolved]

NARRATIVE: CASE EVENT DATE: 20160909
